FAERS Safety Report 6838538-X (Version None)
Quarter: 2010Q3

REPORT INFORMATION
  Report Type: 
  Country: None (occurrence: None)
  Receive Date: 20100713
  Receipt Date: 20070614
  Transmission Date: 20110219
  Serious: No
  Sender: FDA-Public Use
  Company Number: US-PFIZER INC-2007050425

PATIENT
  Sex: Female
  Weight: 65.909 kg

DRUGS (5)
  1. CHANTIX [Suspect]
     Indication: SMOKING CESSATION THERAPY
     Dates: start: 20070530
  2. LORTAB [Concomitant]
  3. MOTRIN [Concomitant]
     Dates: end: 20070601
  4. PLAVIX [Concomitant]
  5. EVISTA [Concomitant]

REACTIONS (2)
  - NAUSEA [None]
  - VOMITING [None]
